FAERS Safety Report 23689020 (Version 4)
Quarter: 2024Q3

REPORT INFORMATION
  Report Type: Spontaneous
  Country: US (occurrence: US)
  Receive Date: 20240329
  Receipt Date: 20240701
  Transmission Date: 20241017
  Serious: No
  Sender: SANDOZ
  Company Number: US-SANDOZ-SDZ2024US032586

PATIENT
  Sex: Female

DRUGS (1)
  1. ALBUTEROL SULFATE [Suspect]
     Active Substance: ALBUTEROL SULFATE
     Indication: Dyspnoea
     Dosage: UNK UNK, QD  2 PUFFS A DAY, SOMETIMES MORE, SOMETIMES LESS
     Route: 065

REACTIONS (3)
  - Off label use [Unknown]
  - Product dose omission issue [Unknown]
  - Drug delivery system issue [Unknown]
